FAERS Safety Report 5776067-5 (Version None)
Quarter: 2008Q2

REPORT INFORMATION
  Report Type: 
  Country: None (occurrence: None)
  Receive Date: 20080613
  Receipt Date: 20080529
  Transmission Date: 20081010
  Serious: Yes (Congenital Anomaly)
  Sender: FDA-Public Use
  Company Number: S08-SWI-02030-02

PATIENT

DRUGS (2)
  1. ESCITALOPRAM [Suspect]
     Dosage: 10 MG QD TRANSPLACENTAL
     Route: 064
     Dates: start: 20070101, end: 20070226
  2. ESCITALOPRAM [Suspect]
     Dosage: 5 MG QD TRANSPLACENTAL
     Route: 064
     Dates: start: 20070227, end: 20070101

REACTIONS (3)
  - ABORTION INDUCED [None]
  - MATERNAL DRUGS AFFECTING FOETUS [None]
  - TRISOMY 21 [None]
